FAERS Safety Report 20236280 (Version 7)
Quarter: 2022Q2

REPORT INFORMATION
  Report Type: Report from Study
  Country: US (occurrence: US)
  Receive Date: 20211228
  Receipt Date: 20220621
  Transmission Date: 20220721
  Serious: Yes (Other)
  Sender: FDA-Public Use
  Company Number: US-NOVARTISTESTPH-NVSC2021US297835

PATIENT
  Sex: Male

DRUGS (3)
  1. ENTRESTO [Suspect]
     Active Substance: SACUBITRIL\VALSARTAN
     Indication: Product used for unknown indication
     Dosage: 1 DOSAGE FORM, BID (49/51MG)
     Route: 048
  2. ENTRESTO [Suspect]
     Active Substance: SACUBITRIL\VALSARTAN
     Dosage: 50 MG, BID (24/26MG)
     Route: 065
  3. ASPIRIN [Suspect]
     Active Substance: ASPIRIN
     Indication: Product used for unknown indication
     Dosage: UNK
     Route: 048

REACTIONS (14)
  - Gastric haemorrhage [Recovering/Resolving]
  - Anaemia [Unknown]
  - Gastric pH decreased [Unknown]
  - Dysphonia [Unknown]
  - Nasal congestion [Unknown]
  - Reflux gastritis [Unknown]
  - Spinal stenosis [Unknown]
  - Balance disorder [Unknown]
  - Throat clearing [Unknown]
  - Sinus disorder [Unknown]
  - Fatigue [Unknown]
  - Hypersensitivity [Unknown]
  - Cough [Unknown]
  - Hypotension [Not Recovered/Not Resolved]
